FAERS Safety Report 7266468-0 (Version None)
Quarter: 2011Q1

REPORT INFORMATION
  Report Type: 
  Country: None (occurrence: None)
  Receive Date: 20110131
  Receipt Date: 20110121
  Transmission Date: 20110831
  Serious: Yes (Hospitalization)
  Sender: FDA-Public Use
  Company Number: FR-ELI_LILLY_AND_COMPANY-FR201101005619

PATIENT
  Age: 57 Year
  Sex: Male

DRUGS (1)
  1. BYETTA [Suspect]
     Indication: INSULIN-REQUIRING TYPE 2 DIABETES MELLITUS
     Dosage: 10 UG, 2/D
     Route: 058
     Dates: start: 20080101, end: 20110101

REACTIONS (5)
  - EOSINOPHILIA [None]
  - NECK PAIN [None]
  - ECZEMA [None]
  - PLEURAL EFFUSION [None]
  - SUBCUTANEOUS ABSCESS [None]
